FAERS Safety Report 10995203 (Version 1)
Quarter: 2015Q2

REPORT INFORMATION
  Report Type: Other
  Country: GB (occurrence: GB)
  Receive Date: 20150407
  Receipt Date: 20150407
  Transmission Date: 20150821
  Serious: Yes (Other)
  Sender: FDA-Public Use
  Company Number: GB-TAKEDA-2015TEU003028

PATIENT
  Age: 64 Year
  Sex: Male
  Weight: 108 kg

DRUGS (8)
  1. SIMVASTATIN. [Concomitant]
     Active Substance: SIMVASTATIN
  2. GLICLAZIDE [Concomitant]
     Active Substance: GLICLAZIDE
  3. PERINDOPRIL ERBUMINE. [Concomitant]
     Active Substance: PERINDOPRIL ERBUMINE
  4. PIOGLITAZONE [Suspect]
     Active Substance: PIOGLITAZONE
     Indication: TYPE 2 DIABETES MELLITUS
     Dosage: 1 DF, QD
     Route: 048
     Dates: end: 20150310
  5. HUMALOG [Concomitant]
     Active Substance: INSULIN LISPRO
     Dosage: 56 IU, QD
  6. LANSOPRAZOLE. [Concomitant]
     Active Substance: LANSOPRAZOLE
  7. METFORMIN HYDROCHLORIDE. [Concomitant]
     Active Substance: METFORMIN HYDROCHLORIDE
  8. QUININE SULPHATE [Concomitant]
     Active Substance: QUININE SULFATE

REACTIONS (4)
  - Abnormal weight gain [Recovering/Resolving]
  - Oedema [Recovering/Resolving]
  - Tooth disorder [Recovering/Resolving]
  - Lethargy [Recovering/Resolving]

NARRATIVE: CASE EVENT DATE: 20150107
